FAERS Safety Report 7688872-9 (Version None)
Quarter: 2011Q3

REPORT INFORMATION
  Report Type: 
  Country: None (occurrence: None)
  Receive Date: 20110817
  Receipt Date: 20110804
  Transmission Date: 20111222
  Serious: Yes (Other)
  Sender: FDA-Public Use
  Company Number: PHHY2011US52161

PATIENT
  Sex: Male
  Weight: 73.94 kg

DRUGS (1)
  1. EXJADE [Suspect]
     Indication: MYELODYSPLASTIC SYNDROME
     Dosage: 1500 MG, DAILY
     Route: 048
     Dates: start: 20100701, end: 20110613

REACTIONS (8)
  - RED BLOOD CELL COUNT DECREASED [None]
  - NEUTROPHIL COUNT DECREASED [None]
  - BLOOD PRESSURE DIASTOLIC DECREASED [None]
  - CREATININE RENAL CLEARANCE DECREASED [None]
  - WHITE BLOOD CELL COUNT DECREASED [None]
  - DEAFNESS [None]
  - HAEMOGLOBIN DECREASED [None]
  - RED CELL DISTRIBUTION WIDTH INCREASED [None]
